FAERS Safety Report 9073533 (Version 1)
Quarter: 2013Q1

REPORT INFORMATION
  Report Type: Spontaneous
  Country: PR (occurrence: PR)
  Receive Date: 20130129
  Receipt Date: 20130129
  Transmission Date: 20140127
  Serious: Yes (Hospitalization)
  Sender: FDA-Public Use
  Company Number: PR-ABBOTT-12P-131-0916811-00

PATIENT
  Age: 47 None
  Sex: Female
  Weight: 88.98 kg

DRUGS (5)
  1. HUMIRA 40 MG/0.8 ML PEN [Suspect]
     Indication: PRODUCT USED FOR UNKNOWN INDICATION
     Route: 058
     Dates: start: 201108, end: 20120316
  2. METHOTREXATE [Concomitant]
     Indication: RHEUMATOID ARTHRITIS
     Dosage: 20MG (8 TABLETS) ONCE IN A WEEK
     Route: 048
     Dates: start: 2010
  3. FOLIC ACID [Concomitant]
     Indication: RHEUMATOID ARTHRITIS
     Route: 048
     Dates: start: 201105
  4. SYNTHROID [Concomitant]
     Indication: THYROID DISORDER
     Route: 048
     Dates: start: 2008
  5. ADVAIR [Concomitant]
     Indication: ASTHMA
     Dosage: (100/50) 1 PUMP DAILY
     Route: 048
     Dates: start: 2010

REACTIONS (2)
  - Bronchitis [Recovered/Resolved]
  - Blood glucose increased [Unknown]
